FAERS Safety Report 13650719 (Version 1)
Quarter: 2017Q2

REPORT INFORMATION
  Report Type: Spontaneous
  Country: US (occurrence: US)
  Receive Date: 20170614
  Receipt Date: 20170614
  Transmission Date: 20170830
  Serious: No
  Sender: FDA-Public Use
  Company Number: None

PATIENT
  Age: 80 Year
  Sex: Female
  Weight: 73.55 kg

DRUGS (12)
  1. DUXALANT [Concomitant]
  2. BOTOX [Suspect]
     Active Substance: ONABOTULINUMTOXINA
     Indication: HEADACHE
     Dates: start: 201510, end: 20170407
  3. RUXABANT [Concomitant]
  4. CALCIUM [Concomitant]
     Active Substance: CALCIUM
  5. VESICARE [Concomitant]
     Active Substance: SOLIFENACIN SUCCINATE
  6. TIZANIDINE. [Concomitant]
     Active Substance: TIZANIDINE
  7. BOTOX [Suspect]
     Active Substance: ONABOTULINUMTOXINA
     Indication: MUSCULOSKELETAL STIFFNESS
     Dates: start: 201510, end: 20170407
  8. CITALOPRAM [Concomitant]
     Active Substance: CITALOPRAM HYDROBROMIDE
  9. TRAMADOL. [Concomitant]
     Active Substance: TRAMADOL
  10. VITAMIN B12 [Concomitant]
     Active Substance: CYANOCOBALAMIN
  11. MAGNESIUM [Concomitant]
     Active Substance: MAGNESIUM
  12. BOTOX [Suspect]
     Active Substance: ONABOTULINUMTOXINA
     Indication: INTERVERTEBRAL DISC DISORDER
     Dates: start: 201510, end: 20170407

REACTIONS (8)
  - Feeding disorder [None]
  - Choking [None]
  - Dysstasia [None]
  - Dizziness [None]
  - Pain in extremity [None]
  - Pain [None]
  - Dysphagia [None]
  - Visual impairment [None]

NARRATIVE: CASE EVENT DATE: 20170406
